FAERS Safety Report 19350596 (Version 8)
Quarter: 2022Q4

REPORT INFORMATION
  Report Type: Report from Study
  Country: CO (occurrence: CO)
  Receive Date: 20210531
  Receipt Date: 20221214
  Transmission Date: 20230113
  Serious: Yes (Other)
  Sender: FDA-Public Use
  Company Number: CO-ABBVIE-21K-036-3928160-00

PATIENT
  Age: 63 Year
  Sex: Female
  Weight: 56 kg

DRUGS (2)
  1. HUMIRA [Suspect]
     Active Substance: ADALIMUMAB
     Indication: Rheumatoid arthritis
     Route: 058
     Dates: start: 20100203
  2. HUMIRA [Suspect]
     Active Substance: ADALIMUMAB

REACTIONS (24)
  - Nasal polyps [Recovering/Resolving]
  - Loss of personal independence in daily activities [Unknown]
  - Grip strength decreased [Unknown]
  - Cough [Recovering/Resolving]
  - Joint swelling [Unknown]
  - Dizziness [Not Recovered/Not Resolved]
  - Bone disorder [Recovering/Resolving]
  - Ear congestion [Unknown]
  - Malaise [Not Recovered/Not Resolved]
  - Pain [Recovering/Resolving]
  - Dysphonia [Not Recovered/Not Resolved]
  - Neoplasm malignant [Recovering/Resolving]
  - Ear disorder [Not Recovered/Not Resolved]
  - Influenza like illness [Recovering/Resolving]
  - Productive cough [Not Recovered/Not Resolved]
  - Musculoskeletal stiffness [Not Recovered/Not Resolved]
  - Oropharyngeal pain [Recovering/Resolving]
  - Inflammation [Not Recovered/Not Resolved]
  - Sneezing [Recovering/Resolving]
  - Peripheral swelling [Unknown]
  - Ear discomfort [Not Recovered/Not Resolved]
  - Arthralgia [Recovering/Resolving]
  - Pain in extremity [Not Recovered/Not Resolved]
  - Sinusitis fungal [Recovering/Resolving]

NARRATIVE: CASE EVENT DATE: 20200901
